FAERS Safety Report 13824602 (Version 2)
Quarter: 2017Q4

REPORT INFORMATION
  Report Type: Spontaneous
  Country: US (occurrence: US)
  Receive Date: 20170802
  Receipt Date: 20171124
  Transmission Date: 20180320
  Serious: Yes (Other)
  Sender: FDA-Public Use
  Company Number: US-ASTRAZENECA-2017SE77955

PATIENT
  Age: 278 Month
  Sex: Male
  Weight: 116.1 kg

DRUGS (27)
  1. KLONOPIN [Concomitant]
     Active Substance: CLONAZEPAM
     Route: 048
  2. IPRATROPIUM [Concomitant]
     Active Substance: IPRATROPIUM
     Route: 065
  3. CHLORZOXAZONE. [Concomitant]
     Active Substance: CHLORZOXAZONE
     Route: 048
  4. LISINOPRIL. [Concomitant]
     Active Substance: LISINOPRIL
     Route: 048
  5. PREDNISOLONE. [Concomitant]
     Active Substance: PREDNISOLONE
     Route: 065
  6. OMEPRAZOLE. [Suspect]
     Active Substance: OMEPRAZOLE
     Indication: GASTRIC PH DECREASED
     Route: 048
     Dates: start: 20150914
  7. PRILOSEC OTC [Suspect]
     Active Substance: OMEPRAZOLE MAGNESIUM
     Indication: GASTRIC PH DECREASED
     Route: 048
     Dates: start: 2007, end: 201508
  8. PRILOSEC OTC [Suspect]
     Active Substance: OMEPRAZOLE MAGNESIUM
     Indication: GASTRIC PH DECREASED
     Route: 048
     Dates: start: 2007, end: 201612
  9. VARENICLINE TARTRATE [Concomitant]
     Active Substance: VARENICLINE TARTRATE
     Route: 048
  10. TIZANIDINE. [Concomitant]
     Active Substance: TIZANIDINE
     Route: 048
  11. ALBUTEROL. [Concomitant]
     Active Substance: ALBUTEROL
     Route: 048
  12. PREDNISONE. [Concomitant]
     Active Substance: PREDNISONE
     Route: 048
  13. METOPROLOL TARTRATE. [Concomitant]
     Active Substance: METOPROLOL TARTRATE
     Route: 048
  14. FUROSEMIDE. [Concomitant]
     Active Substance: FUROSEMIDE
     Route: 048
  15. FLURBIPROFEN. [Concomitant]
     Active Substance: FLURBIPROFEN
     Route: 048
  16. OMEPRAZOLE. [Suspect]
     Active Substance: OMEPRAZOLE
     Indication: GASTRIC PH DECREASED
     Route: 048
     Dates: start: 201508, end: 201612
  17. PREVACID 24 HR [Suspect]
     Active Substance: LANSOPRAZOLE
     Indication: GASTRIC PH DECREASED
     Route: 065
     Dates: start: 2007, end: 201508
  18. PREVACID 24 HR [Suspect]
     Active Substance: LANSOPRAZOLE
     Indication: GASTRIC PH DECREASED
     Route: 065
     Dates: start: 2007, end: 201612
  19. CEPHALEXIN. [Concomitant]
     Active Substance: CEPHALEXIN
     Route: 048
  20. LORATADINE. [Concomitant]
     Active Substance: LORATADINE
     Route: 048
  21. CEFDINIR. [Concomitant]
     Active Substance: CEFDINIR
     Route: 048
  22. OMEPRAZOLE. [Suspect]
     Active Substance: OMEPRAZOLE
     Indication: GASTRIC PH DECREASED
     Route: 048
     Dates: start: 2007, end: 201612
  23. PRILOSEC OTC [Suspect]
     Active Substance: OMEPRAZOLE MAGNESIUM
     Indication: GASTRIC PH DECREASED
     Route: 048
     Dates: start: 20150828
  24. METOPROLOL. [Concomitant]
     Active Substance: METOPROLOL
     Route: 048
  25. MYTUSSIN [Concomitant]
     Route: 065
  26. ZITHROMAX [Concomitant]
     Active Substance: AZITHROMYCIN DIHYDRATE
     Route: 048
  27. PRAVASTATIN SODIUM. [Concomitant]
     Active Substance: PRAVASTATIN SODIUM
     Route: 048

REACTIONS (7)
  - End stage renal disease [Unknown]
  - Nephrotic syndrome [Unknown]
  - Focal segmental glomerulosclerosis [Unknown]
  - Renal failure [Unknown]
  - Tubulointerstitial nephritis [Unknown]
  - Acute kidney injury [Unknown]
  - Chronic kidney disease [Unknown]

NARRATIVE: CASE EVENT DATE: 201508
